FAERS Safety Report 7624388-3 (Version None)
Quarter: 2011Q3

REPORT INFORMATION
  Report Type: 
  Country: None (occurrence: None)
  Receive Date: 20110701
  Receipt Date: 20110105
  Transmission Date: 20111222
  Serious: Yes (Other)
  Sender: FDA-Public Use
  Company Number: 7034689

PATIENT
  Age: 35 Year
  Sex: Female

DRUGS (3)
  1. UNSPECIFIED MEDICATION (ALL OTHER THERAPEUTIC PRODUCTS) [Concomitant]
  2. REBIF [Suspect]
     Indication: PRODUCT USED FOR UNKNOWN INDICATION
     Dosage: 44 MCG, 3 IN 1, SUBCUTANEOUS
     Route: 058
     Dates: start: 20090923
  3. UNSPECIFIED MEDICATION (ALL OTHER THERAPEUTIC PRODUCTS) [Concomitant]

REACTIONS (5)
  - FATIGUE [None]
  - VISION BLURRED [None]
  - BACK PAIN [None]
  - SUICIDAL IDEATION [None]
  - HEADACHE [None]
